FAERS Safety Report 25092583 (Version 1)
Quarter: 2025Q1

REPORT INFORMATION
  Report Type: Spontaneous
  Country: US (occurrence: US)
  Receive Date: 20250319
  Receipt Date: 20250319
  Transmission Date: 20250408
  Serious: No
  Sender: JOHNSON AND JOHNSON
  Company Number: US-JNJFOC-20250318566

PATIENT
  Sex: Male

DRUGS (1)
  1. XARELTO [Suspect]
     Active Substance: RIVAROXABAN
     Indication: Thrombosis
     Route: 048

REACTIONS (11)
  - Product dose omission issue [Unknown]
  - Skin disorder [Unknown]
  - Malaise [Unknown]
  - Alopecia [Unknown]
  - Skin atrophy [Unknown]
  - Pruritus [Unknown]
  - Weight decreased [Unknown]
  - Dry skin [Unknown]
  - Joint swelling [Unknown]
  - Rash [Unknown]
  - Exercise tolerance decreased [Unknown]
